FAERS Safety Report 16922591 (Version 3)
Quarter: 2020Q1

REPORT INFORMATION
  Report Type: Spontaneous
  Country: US (occurrence: US)
  Receive Date: 20191016
  Receipt Date: 20200225
  Transmission Date: 20200409
  Serious: Yes (Life-Threatening)
  Sender: FDA-Public Use
  Company Number: US-BEH-2019108028

PATIENT
  Age: 16 Year
  Sex: Female

DRUGS (6)
  1. PLASMALYTE [Concomitant]
     Active Substance: ELECTROLYTES NOS
     Route: 065
  2. REMIFENTANIL [Concomitant]
     Active Substance: REMIFENTANIL
     Route: 065
  3. PROPOFOL. [Concomitant]
     Active Substance: PROPOFOL
     Route: 065
  4. ALBUMIN HUMAN (INN) [Suspect]
     Active Substance: ALBUMIN HUMAN
     Indication: HAEMORRHAGE PROPHYLAXIS
     Dosage: 250 UNK
     Route: 065
  5. AMINOCAPROIC ACID. [Concomitant]
     Active Substance: AMINOCAPROIC ACID
     Route: 065
  6. ALBUMIN HUMAN (INN) [Suspect]
     Active Substance: ALBUMIN HUMAN
     Indication: PROCEDURAL HAEMORRHAGE
     Dosage: 250 MILLILITER
     Route: 065

REACTIONS (3)
  - Cardiac arrest [Recovered/Resolved]
  - Anaphylactic reaction [Recovered/Resolved]
  - Procedural hypotension [Recovered/Resolved]
